FAERS Safety Report 17194794 (Version 1)
Quarter: 2019Q4

REPORT INFORMATION
  Report Type: Spontaneous
  Country: SE (occurrence: SE)
  Receive Date: 20191224
  Receipt Date: 20191224
  Transmission Date: 20200122
  Serious: Yes (Hospitalization)
  Sender: FDA-Public Use
  Company Number: SE-ACCORD-166825

PATIENT
  Age: 13 Year
  Sex: Female
  Weight: 40 kg

DRUGS (3)
  1. PROPAVAN [Suspect]
     Active Substance: PROPIOMAZINE
     Route: 048
     Dates: start: 20190614, end: 20190614
  2. SERTRALINE [Suspect]
     Active Substance: SERTRALINE HYDROCHLORIDE
     Dosage: 100 MG
     Dates: start: 20190614, end: 20190614
  3. PARACETAMOL [Suspect]
     Active Substance: ACETAMINOPHEN
     Dates: start: 20190614, end: 20190614

REACTIONS (5)
  - Confusional state [Unknown]
  - Somnolence [Unknown]
  - Intentional self-injury [Unknown]
  - Miosis [Unknown]
  - Intentional overdose [Unknown]

NARRATIVE: CASE EVENT DATE: 20190614
